FAERS Safety Report 15646895 (Version 3)
Quarter: 2019Q3

REPORT INFORMATION
  Report Type: Spontaneous
  Country: JP (occurrence: JP)
  Receive Date: 20181122
  Receipt Date: 20190905
  Transmission Date: 20191004
  Serious: No
  Sender: FDA-Public Use
  Company Number: JP-ACTELION-A-CH2018-182186

PATIENT
  Sex: Female
  Weight: 110.8 kg

DRUGS (11)
  1. UPTRAVI [Suspect]
     Active Substance: SELEXIPAG
     Indication: PULMONARY ARTERIAL HYPERTENSION
     Dosage: 0.2 MG, BID
     Route: 048
     Dates: start: 20180824, end: 20180828
  2. BEPRICOR [Concomitant]
     Active Substance: BEPRIDIL
     Indication: ARRHYTHMIA
     Dosage: 150 MG, QD
  3. WARFARIN [Concomitant]
     Active Substance: WARFARIN
     Indication: ARRHYTHMIA
     Dosage: 4.5 MG, QD
  4. LUPRAC [Concomitant]
     Active Substance: TORSEMIDE
     Dosage: 4 MG, QD
  5. SAMSCA [Concomitant]
     Active Substance: TOLVAPTAN
     Dosage: 3.75 MG, QD
  6. BISOPROLOL [Concomitant]
     Active Substance: BISOPROLOL
     Indication: ARRHYTHMIA
     Dosage: 2.5 MG, QD
  7. VOLIBRIS [Concomitant]
     Active Substance: AMBRISENTAN
     Indication: PULMONARY ARTERIAL HYPERTENSION
     Dosage: 10 MG, QD
  8. ADCIRCA [Concomitant]
     Active Substance: TADALAFIL
     Indication: PULMONARY ARTERIAL HYPERTENSION
     Dosage: 40 MG, QD
  9. FEBURIC [Concomitant]
     Active Substance: FEBUXOSTAT
     Indication: CHRONIC KIDNEY DISEASE
     Dosage: 30 MG, QD
  10. UPTRAVI [Suspect]
     Active Substance: SELEXIPAG
     Dosage: 0.4 MG, BID
     Route: 048
     Dates: start: 20180829
  11. ASPENON [Concomitant]
     Active Substance: APRINDINE HYDROCHLORIDE
     Indication: ARRHYTHMIA
     Dosage: 40 MG, QD

REACTIONS (1)
  - Atrial fibrillation [Recovered/Resolved]
